FAERS Safety Report 5104265-2 (Version None)
Quarter: 2006Q3

REPORT INFORMATION
  Report Type: 
  Country: None (occurrence: None)
  Receive Date: 20060914
  Receipt Date: 20060831
  Transmission Date: 20061208
  Serious: Yes (Other)
  Sender: FDA-Public Use
  Company Number: US-JNJFOC-20060804797

PATIENT
  Sex: Male
  Weight: 140.62 kg

DRUGS (20)
  1. REMICADE [Suspect]
     Route: 042
  2. REMICADE [Suspect]
     Route: 042
  3. REMICADE [Suspect]
     Route: 042
  4. REMICADE [Suspect]
     Route: 042
  5. REMICADE [Suspect]
     Route: 042
  6. REMICADE [Suspect]
     Route: 042
  7. REMICADE [Suspect]
     Route: 042
  8. REMICADE [Suspect]
     Route: 042
  9. REMICADE [Suspect]
     Indication: RHEUMATOID ARTHRITIS
     Route: 042
  10. METHOTREXATE [Concomitant]
  11. METHOTREXATE [Concomitant]
  12. ARAVA [Concomitant]
  13. ARAVA [Concomitant]
  14. PREDNISONE TAB [Concomitant]
  15. PREDNISONE TAB [Concomitant]
  16. TYLENOL [Concomitant]
  17. ASPIRIN [Concomitant]
  18. FLEXERIL [Concomitant]
  19. LORTAB [Concomitant]
  20. BEXTRA [Concomitant]

REACTIONS (4)
  - BACK PAIN [None]
  - CHRONIC LYMPHOCYTIC LEUKAEMIA [None]
  - LYMPHOCYTIC LYMPHOMA [None]
  - POSTOPERATIVE INFECTION [None]
